FAERS Safety Report 5333216-0 (Version None)
Quarter: 2007Q2

REPORT INFORMATION
  Report Type: 
  Country: None (occurrence: None)
  Receive Date: 20070524
  Receipt Date: 20070514
  Transmission Date: 20071010
  Serious: Yes (Other)
  Sender: FDA-Public Use
  Company Number: PHBS2007US08137

PATIENT
  Age: 60 Year
  Sex: Male

DRUGS (5)
  1. TIMOLOL 0.5% (NVO) [Suspect]
     Indication: GLAUCOMA
  2. PILOCARPINE 1% (NVO) [Suspect]
     Indication: GLAUCOMA
  3. AZOPT [Suspect]
     Indication: GLAUCOMA
  4. TRUSOPT [Suspect]
     Indication: GLAUCOMA
  5. LUMIGAN [Suspect]
     Indication: GLAUCOMA

REACTIONS (3)
  - CONJUNCTIVAL HYPERAEMIA [None]
  - CONJUNCTIVAL IRRITATION [None]
  - CONJUNCTIVITIS ALLERGIC [None]
